FAERS Safety Report 6205596-5 (Version None)
Quarter: 2009Q2

REPORT INFORMATION
  Report Type: 
  Country: None (occurrence: None)
  Receive Date: 20090527
  Receipt Date: 20090407
  Transmission Date: 20091009
  Serious: No
  Sender: FDA-Public Use
  Company Number: US-ABBOTT-09P-163-0567042-00

PATIENT
  Sex: Male

DRUGS (4)
  1. SIMCOR [Suspect]
     Indication: DRUG USE FOR UNKNOWN INDICATION
     Dosage: 500MG/20MG DAILY
     Dates: start: 20090331, end: 20090401
  2. ASPIRIN [Concomitant]
     Indication: FLUSHING
     Dates: start: 20090401, end: 20090401
  3. VICODIN ES [Concomitant]
     Indication: DRUG USE FOR UNKNOWN INDICATION
  4. FLEXERIL [Concomitant]
     Indication: DRUG USE FOR UNKNOWN INDICATION

REACTIONS (6)
  - ANXIETY [None]
  - DRUG HYPERSENSITIVITY [None]
  - FLUSHING [None]
  - PANIC ATTACK [None]
  - PARAESTHESIA [None]
  - SKIN BURNING SENSATION [None]
